FAERS Safety Report 13784799 (Version 1)
Quarter: 2017Q3

REPORT INFORMATION
  Report Type: Spontaneous
  Country: US (occurrence: US)
  Receive Date: 20170724
  Receipt Date: 20170724
  Transmission Date: 20171127
  Serious: No
  Sender: FDA-Public Use
  Company Number: None

PATIENT
  Age: 4 Year
  Sex: Male

DRUGS (1)
  1. SAIZEN [Suspect]
     Active Substance: SOMATROPIN

REACTIONS (3)
  - Injection site reaction [None]
  - Rash [None]
  - Injection site bruising [None]

NARRATIVE: CASE EVENT DATE: 20170710
